FAERS Safety Report 24820752 (Version 2)
Quarter: 2025Q1

REPORT INFORMATION
  Report Type: Spontaneous
  Country: US (occurrence: US)
  Receive Date: 20250108
  Receipt Date: 20250210
  Transmission Date: 20250409
  Serious: No
  Sender: SANOFI AVENTIS
  Company Number: US-SA-2025SA002212

PATIENT
  Age: 79 Year
  Sex: Female

DRUGS (11)
  1. DUPIXENT [Suspect]
     Active Substance: DUPILUMAB
     Indication: Dermatitis atopic
     Dosage: 300 MG, QOW
     Route: 058
     Dates: start: 20240930, end: 2024
  2. CELECOXIB [Concomitant]
     Active Substance: CELECOXIB
  3. SYNTHROID [Concomitant]
     Active Substance: LEVOTHYROXINE SODIUM
  4. CYCLOSPORINE [Concomitant]
     Active Substance: CYCLOSPORINE
  5. TORSEMIDE [Concomitant]
     Active Substance: TORSEMIDE
  6. POTASSIUM CHLORIDE [Concomitant]
     Active Substance: POTASSIUM CHLORIDE
  7. GEMTESA [Concomitant]
     Active Substance: VIBEGRON
  8. CEPHALEXIN [Concomitant]
     Active Substance: CEPHALEXIN
  9. LANSOPRAZOLE [Concomitant]
     Active Substance: LANSOPRAZOLE
  10. LOSARTAN POTASSIUM [Concomitant]
     Active Substance: LOSARTAN POTASSIUM
  11. PREDNISONE [Concomitant]
     Active Substance: PREDNISONE

REACTIONS (11)
  - Dry skin [Unknown]
  - Alopecia [Unknown]
  - Lacrimation increased [Unknown]
  - Joint swelling [Unknown]
  - Oral pain [Unknown]
  - Condition aggravated [Unknown]
  - Vision blurred [Unknown]
  - Headache [Unknown]
  - Skin exfoliation [Unknown]
  - Eye pruritus [Unknown]
  - Adverse drug reaction [Unknown]

NARRATIVE: CASE EVENT DATE: 20240101
